FAERS Safety Report 19361178 (Version 1)
Quarter: 2021Q2

REPORT INFORMATION
  Report Type: Spontaneous
  Country: NL (occurrence: NL)
  Receive Date: 20210601
  Receipt Date: 20210601
  Transmission Date: 20210717
  Serious: Yes (Other)
  Sender: FDA-Public Use
  Company Number: NL-TEVA-2021-NL-1917727

PATIENT
  Age: 49 Year
  Sex: Male
  Weight: 70 kg

DRUGS (2)
  1. TAMSULOSINE CAPSULE MGA 0,4MG / BRAND NAME NOT SPECIFIED [Suspect]
     Active Substance: TAMSULOSIN HYDROCHLORIDE
     Indication: DYSURIA
     Dosage: .4 MILLIGRAM DAILY; 1 X PER DAY 1 PIECE
     Dates: start: 20210428, end: 20210428
  2. CIPROFLOXACINE TABLET 500MG / BRAND NAME NOT SPECIFIED [Concomitant]
     Active Substance: CIPROFLOXACIN
     Dosage: 500 MG (MILLIGRAM)THERAPY START DATE:THERAPY END DATE :ASKU

REACTIONS (1)
  - Syncope [Not Recovered/Not Resolved]

NARRATIVE: CASE EVENT DATE: 20210428
